FAERS Safety Report 5022404-9 (Version None)
Quarter: 2006Q2

REPORT INFORMATION
  Report Type: 
  Country: None (occurrence: None)
  Receive Date: 20060609
  Receipt Date: 20060525
  Transmission Date: 20061013
  Serious: Yes (Hospitalization)
  Sender: FDA-Public Use
  Company Number: 2006UW10155

PATIENT
  Age: 24528 Day
  Sex: Male
  Weight: 56.8 kg

DRUGS (5)
  1. ZD2171 [Suspect]
     Route: 048
     Dates: start: 20060306, end: 20060524
  2. MFOLFOX [Suspect]
     Dates: start: 20060306, end: 20060503
  3. OXYCONTIN [Concomitant]
     Indication: PAIN
     Route: 048
     Dates: start: 20050216
  4. VICODIN [Concomitant]
     Indication: PAIN
     Dosage: 5/500 MG Q6H
     Route: 048
     Dates: start: 20050209
  5. NORVASC [Concomitant]
     Indication: HYPERTENSION
     Route: 048
     Dates: start: 20051103

REACTIONS (7)
  - ATRIAL HYPERTROPHY [None]
  - EMPHYSEMA [None]
  - ISCHAEMIC STROKE [None]
  - MITRAL VALVE INCOMPETENCE [None]
  - PULMONARY VALVE INCOMPETENCE [None]
  - TRICUSPID VALVE INCOMPETENCE [None]
  - VENTRICULAR HYPERTROPHY [None]
